FAERS Safety Report 21035293 (Version 6)
Quarter: 2022Q4

REPORT INFORMATION
  Report Type: Report from Study
  Country: CN (occurrence: CN)
  Receive Date: 20220701
  Receipt Date: 20221003
  Transmission Date: 20230113
  Serious: Yes (Hospitalization)
  Sender: FDA-Public Use
  Company Number: CN-PFIZER INC-PV202200008217

PATIENT
  Age: 58 Year
  Sex: Female
  Weight: 56 kg

DRUGS (32)
  1. SASANLIMAB [Suspect]
     Active Substance: SASANLIMAB
     Indication: Bladder neoplasm
     Dosage: 300 MG, ONCE
     Route: 058
     Dates: start: 20210817, end: 20220622
  2. BCG VACCINE [Suspect]
     Active Substance: BCG VACCINE
     Indication: Bladder neoplasm
     Dosage: 120 MG, ONCE, IRRIGATION OF BLADDER
     Dates: start: 20210817, end: 20210922
  3. METHYLPREDNISOLONE SODIUM SUCCINATE [Suspect]
     Active Substance: METHYLPREDNISOLONE SODIUM SUCCINATE
     Indication: Drug eruption
     Dosage: 40 MG, ST
     Route: 041
     Dates: start: 20220520, end: 20220520
  4. METHYLPREDNISOLONE SODIUM SUCCINATE [Suspect]
     Active Substance: METHYLPREDNISOLONE SODIUM SUCCINATE
     Dosage: 40 MG, 1X/DAY
     Route: 041
     Dates: start: 20220521, end: 20220525
  5. METHYLPREDNISOLONE SODIUM SUCCINATE [Suspect]
     Active Substance: METHYLPREDNISOLONE SODIUM SUCCINATE
     Dosage: 30 MG, 1X/DAY
     Route: 041
     Dates: start: 20220526, end: 20220527
  6. METHYLPREDNISOLONE [Suspect]
     Active Substance: METHYLPREDNISOLONE
     Indication: Drug eruption
     Dosage: 16/12 MG TABLETS, QD
     Route: 048
     Dates: start: 20220528, end: 20220528
  7. METHYLPREDNISOLONE [Suspect]
     Active Substance: METHYLPREDNISOLONE
     Indication: Prophylaxis
     Dosage: 20 MG TABLETS, QD
     Route: 048
     Dates: start: 20220529, end: 20220530
  8. METHYLPREDNISOLONE [Suspect]
     Active Substance: METHYLPREDNISOLONE
     Dosage: 16 MG TABLETS, QD
     Route: 048
     Dates: start: 20220531, end: 20220602
  9. METHYLPREDNISOLONE [Suspect]
     Active Substance: METHYLPREDNISOLONE
     Dosage: 12 MG TABLETS, QD
     Route: 048
     Dates: start: 20220603, end: 20220604
  10. METHYLPREDNISOLONE [Suspect]
     Active Substance: METHYLPREDNISOLONE
     Dosage: 8 MG TABLETS, QD
     Route: 048
     Dates: start: 20220605, end: 20220606
  11. METHYLPREDNISOLONE [Suspect]
     Active Substance: METHYLPREDNISOLONE
     Dosage: 4 MG TABLETS, QD
     Route: 048
     Dates: start: 20220607, end: 20220608
  12. BISMUTH SUBCITRATE [Suspect]
     Active Substance: BISMUTH SUBCITRATE
     Indication: Chronic gastritis
     Dosage: CAPSULE
  13. LEVOFLOXACIN [Suspect]
     Active Substance: LEVOFLOXACIN
     Indication: Chronic gastritis
     Dosage: LACTATE DISPERSIBLE TABLET
  14. ILAPRAZOLE [Suspect]
     Active Substance: ILAPRAZOLE
     Indication: Drug eruption
     Dosage: 5 MG, 1X/DAY, ENTERIC-COATED TABLETS
     Route: 048
     Dates: start: 20220521, end: 20220530
  15. ILAPRAZOLE [Suspect]
     Active Substance: ILAPRAZOLE
     Indication: Prophylaxis
  16. ILAPRAZOLE [Suspect]
     Active Substance: ILAPRAZOLE
     Indication: Chronic gastritis
  17. CLARITHROMYCIN [Suspect]
     Active Substance: CLARITHROMYCIN
     Indication: Chronic gastritis
     Dosage: TABLETS
     Dates: start: 20220505, end: 20220518
  18. PANTOPRAZOLE [Suspect]
     Active Substance: PANTOPRAZOLE
     Indication: Drug eruption
     Dosage: 40 MG, ST, SODIUM FOR INJECTION
     Route: 041
     Dates: start: 20220520, end: 20220520
  19. PANTOPRAZOLE [Suspect]
     Active Substance: PANTOPRAZOLE
     Indication: Prophylaxis
  20. DESLORATADINE [Suspect]
     Active Substance: DESLORATADINE
     Indication: Drug eruption
     Dosage: 8.8 MG, 1X/DAY, CITRATE DISODIUM TABLETS
     Route: 048
     Dates: start: 20220521, end: 20220602
  21. POTASSIUM CHLORIDE [Suspect]
     Active Substance: POTASSIUM CHLORIDE
     Indication: Drug eruption
     Dosage: 5 ML, 1X/DAY, INJECTION
     Route: 041
     Dates: start: 20220521, end: 20220527
  22. POTASSIUM CHLORIDE [Suspect]
     Active Substance: POTASSIUM CHLORIDE
     Indication: Drug eruption
     Dosage: 0.5 MG, 2X/DAY, SUSTAINED-RELEASE TABLETS
     Route: 048
     Dates: start: 20220528, end: 20220602
  23. POTASSIUM CHLORIDE [Suspect]
     Active Substance: POTASSIUM CHLORIDE
     Indication: Prophylaxis
  24. CALCIUM GLUCONATE [Suspect]
     Active Substance: CALCIUM GLUCONATE
     Indication: Drug eruption
     Dosage: 10 ML, 1X/DAY, INJECTION
     Route: 041
     Dates: start: 20220521, end: 20220527
  25. THYMOSIN [Suspect]
     Active Substance: THYMOSIN
     Indication: Drug eruption
     Dosage: INJECTION
  26. LEVOCETIRIZINE HYDROCHLORIDE [Suspect]
     Active Substance: LEVOCETIRIZINE HYDROCHLORIDE
     Indication: Drug eruption
     Dosage: 5 MG, AS NEEDED, TABLETS
     Route: 048
     Dates: start: 20220521, end: 20220524
  27. CALCIUM ACETATE [Suspect]
     Active Substance: CALCIUM ACETATE
     Indication: Drug eruption
     Dosage: 1 BAG, 2X/DAY, GRANULES
     Route: 048
     Dates: start: 20220528, end: 20220602
  28. CALCIUM ACETATE [Suspect]
     Active Substance: CALCIUM ACETATE
     Indication: Prophylaxis
  29. OMEPRAZOLE [Suspect]
     Active Substance: OMEPRAZOLE
     Indication: Drug eruption
     Dosage: 20 MG, 2X/DAY, ENTERIC-COATED CAPSULES
     Route: 048
     Dates: start: 20220531, end: 20220601
  30. OMEPRAZOLE [Suspect]
     Active Substance: OMEPRAZOLE
     Indication: Prophylaxis
  31. LEVOTHYROXINE SODIUM [Concomitant]
     Active Substance: LEVOTHYROXINE SODIUM
     Indication: Hypothyroidism
     Dosage: 100 MG, QD
     Route: 048
     Dates: start: 20220428, end: 20220621
  32. THYMOPOLYPEPTIDES [Concomitant]
     Indication: Prophylaxis
     Dosage: 250 ML, 1X/DAY
     Route: 041
     Dates: start: 20220521, end: 20220527

REACTIONS (1)
  - Liver injury [Recovered/Resolved]

NARRATIVE: CASE EVENT DATE: 20220621
